FAERS Safety Report 19166365 (Version 1)
Quarter: 2021Q2

REPORT INFORMATION
  Report Type: Spontaneous
  Country: US (occurrence: US)
  Receive Date: 20210420
  Receipt Date: 20210420
  Transmission Date: 20210717
  Serious: Yes (Disabling)
  Sender: FDA-Public Use
  Company Number: None

PATIENT
  Age: 40 Year
  Sex: Male
  Weight: 110.25 kg

DRUGS (2)
  1. METOCLOPRAMIDE 10MG [Suspect]
     Active Substance: METOCLOPRAMIDE
     Indication: GASTROOESOPHAGEAL REFLUX DISEASE
     Dosage: ?          QUANTITY:56 TABLET(S);?
     Route: 048
     Dates: start: 20210325, end: 20210327
  2. OMEPRAZOLE. [Suspect]
     Active Substance: OMEPRAZOLE

REACTIONS (4)
  - Anxiety [None]
  - Panic attack [None]
  - Akathisia [None]
  - Tremor [None]

NARRATIVE: CASE EVENT DATE: 20210327
